FAERS Safety Report 21838831 (Version 4)
Quarter: 2023Q1

REPORT INFORMATION
  Report Type: Spontaneous
  Country: US (occurrence: US)
  Receive Date: 20230109
  Receipt Date: 20230303
  Transmission Date: 20230417
  Serious: No
  Sender: FDA-Public Use
  Company Number: US-PFIZER INC-202300004918

PATIENT
  Age: 68 Year
  Sex: Female
  Weight: 79.38 kg

DRUGS (3)
  1. DEPO-ESTRADIOL [Suspect]
     Active Substance: ESTRADIOL CYPIONATE
     Indication: Atrophic vulvovaginitis
     Dosage: 3 MG (0.6ML OR 3MG EVERY 2 WEEKS)
  2. DEPO-ESTRADIOL [Suspect]
     Active Substance: ESTRADIOL CYPIONATE
     Indication: Vulvovaginal dryness
  3. DEPO-ESTRADIOL [Suspect]
     Active Substance: ESTRADIOL CYPIONATE
     Indication: Vulvovaginal pain

REACTIONS (1)
  - Off label use [Unknown]
